FAERS Safety Report 11788944 (Version 1)
Quarter: 2015Q4

REPORT INFORMATION
  Report Type: Spontaneous
  Country: GB (occurrence: GB)
  Receive Date: 20151201
  Receipt Date: 20151201
  Transmission Date: 20160305
  Serious: Yes (Other)
  Sender: FDA-Public Use
  Company Number: GB-WATSON-2015-18859

PATIENT
  Age: 62 Year
  Sex: Female
  Weight: 68 kg

DRUGS (4)
  1. PREDNISOLONE (UNKNOWN) [Suspect]
     Active Substance: PREDNISOLONE
     Indication: RASH
     Dosage: 30 MG, DAILY
     Route: 048
     Dates: start: 20150603, end: 20150714
  2. ELOCON [Concomitant]
     Active Substance: MOMETASONE FUROATE
     Indication: SUBACUTE CUTANEOUS LUPUS ERYTHEMATOSUS
     Dosage: UNK UNK, PRN; TWICE DAILY AS NECESSARY.
     Route: 065
     Dates: start: 20150511
  3. HYDROXYCHLOROQUINE (UNKNOWN) [Suspect]
     Active Substance: HYDROXYCHLOROQUINE
     Indication: SUBACUTE CUTANEOUS LUPUS ERYTHEMATOSUS
     Dosage: 200 MG, DAILY
     Route: 048
     Dates: start: 20150511, end: 20150525
  4. HYDROXYZINE [Concomitant]
     Active Substance: HYDROXYZINE\HYDROXYZINE HYDROCHLORIDE
     Indication: PRURITUS
     Dosage: 1 DF, QPM
     Route: 048
     Dates: start: 20150511

REACTIONS (1)
  - Urticaria [Recovered/Resolved]

NARRATIVE: CASE EVENT DATE: 20150513
